FAERS Safety Report 5870860-6 (Version None)
Quarter: 2008Q3

REPORT INFORMATION
  Report Type: 
  Country: None (occurrence: None)
  Receive Date: 20080904
  Receipt Date: 20080829
  Transmission Date: 20090109
  Serious: Yes (Other)
  Sender: FDA-Public Use
  Company Number: US-TYCO HEALTHCARE/MALLINCKRODT-T200700412

PATIENT

DRUGS (13)
  1. METHADONE HCL [Suspect]
     Indication: MIGRAINE
     Dosage: 50 MG, QD
     Route: 048
     Dates: start: 20010101, end: 20080819
  2. METHADONE HCL [Suspect]
     Indication: FIBROMYALGIA
  3. METHADOSE [Suspect]
     Indication: PAIN
     Dosage: AS NEEDED UP TO 6 TIMES A DAY
     Route: 048
     Dates: start: 20010101
  4. PROMETHAZINE [Concomitant]
     Indication: NAUSEA
     Dosage: 25 MG, PRN
     Route: 048
  5. LORTAB [Concomitant]
     Indication: PAIN
     Dosage: 10 MG, PRN
     Route: 048
  6. FLEXERIL [Concomitant]
     Indication: MUSCLE SPASMS
     Dosage: 10 MG, PRN
     Route: 048
  7. VALIUM [Concomitant]
     Indication: ANXIETY
     Dosage: 10 MG, PRN
     Route: 048
  8. LASIX [Concomitant]
     Indication: OEDEMA PERIPHERAL
     Dosage: UNK, PRN
     Route: 048
  9. MULTIVITAMIN                       /00831701/ [Concomitant]
     Indication: VITAMIN SUPPLEMENTATION
     Route: 048
  10. PHENTERMINE [Concomitant]
     Indication: ASTHENIA
     Route: 048
  11. PYRIDIUM [Concomitant]
     Dosage: 200 MG, UNK
     Route: 048
  12. URISED [Concomitant]
     Dosage: 1 TABLET AT NIGHT
     Route: 048
  13. SEROQUEL [Concomitant]

REACTIONS (21)
  - ABDOMINAL PAIN [None]
  - AMNESIA [None]
  - ANORECTAL DISORDER [None]
  - BIPOLAR DISORDER [None]
  - CYSTITIS [None]
  - DIARRHOEA [None]
  - FEELING ABNORMAL [None]
  - HEAD INJURY [None]
  - HEADACHE [None]
  - LOSS OF CONSCIOUSNESS [None]
  - MUSCLE SPASMS [None]
  - OXYGEN SATURATION DECREASED [None]
  - PARAESTHESIA [None]
  - PAROSMIA [None]
  - PUPILS UNEQUAL [None]
  - SLEEP APNOEA SYNDROME [None]
  - SOMNOLENCE [None]
  - URETHRAL DISORDER [None]
  - URINARY RETENTION [None]
  - WEIGHT INCREASED [None]
  - WITHDRAWAL SYNDROME [None]
